FAERS Safety Report 24851464 (Version 1)
Quarter: 2025Q1

REPORT INFORMATION
  Report Type: Spontaneous
  Country: US (occurrence: US)
  Receive Date: 20250116
  Receipt Date: 20250116
  Transmission Date: 20250409
  Serious: No
  Sender: SK LIFE SCIENCE
  Company Number: US-SK LIFE SCIENCE, INC-SKPVG-2024-001182

PATIENT

DRUGS (10)
  1. XCOPRI [Suspect]
     Active Substance: CENOBAMATE
     Indication: Seizure
     Route: 048
     Dates: start: 2020
  2. XCOPRI [Suspect]
     Active Substance: CENOBAMATE
     Dosage: 200 MILLIGRAM ONCE DAILY, EVENING
     Route: 048
     Dates: start: 202103
  3. KEPPRA [Concomitant]
     Active Substance: LEVETIRACETAM
     Indication: Product used for unknown indication
     Dosage: EIGHT 500MG TABLETS A DAY. 3 IN THE MORNING, 2 IN THE AFTERNOON, 3 AT NIGHT.
     Route: 065
  4. KEPPRA [Concomitant]
     Active Substance: LEVETIRACETAM
     Route: 065
     Dates: start: 202402, end: 20240320
  5. KEPPRA [Concomitant]
     Active Substance: LEVETIRACETAM
     Dosage: 500 MILLIGRAM, QD
     Route: 065
     Dates: start: 20240427
  6. LEXAPRO [Concomitant]
     Active Substance: ESCITALOPRAM OXALATE
     Indication: Anxiety
     Dosage: 5 MILLIGRAM, QD
     Route: 065
     Dates: start: 2022
  7. CRESTOR [Concomitant]
     Active Substance: ROSUVASTATIN CALCIUM
     Indication: Blood cholesterol
     Route: 065
     Dates: start: 202403, end: 202406
  8. DICLOFENAC [Concomitant]
     Active Substance: DICLOFENAC
     Indication: Arthritis
     Dosage: 75 MILLIGRAM, BID
     Route: 065
     Dates: start: 2020
  9. PULMICORT TURBUHALER [Concomitant]
     Active Substance: BUDESONIDE
     Indication: Product used for unknown indication
     Dosage: 180 MICROGRAM 1 PUFF TWICE A DAY
     Route: 065
     Dates: start: 202403
  10. ALBUTEROL [Concomitant]
     Active Substance: ALBUTEROL
     Indication: Product used for unknown indication
     Route: 065
     Dates: start: 2020

REACTIONS (8)
  - Abdominal discomfort [Recovered/Resolved]
  - Thinking abnormal [Recovered/Resolved]
  - Staring [Recovered/Resolved]
  - Abnormal behaviour [Recovered/Resolved]
  - Loss of personal independence in daily activities [Recovered/Resolved]
  - Headache [Recovered/Resolved]
  - Disorientation [Recovered/Resolved]
  - Hiccups [Unknown]

NARRATIVE: CASE EVENT DATE: 20240420
